FAERS Safety Report 9254251 (Version 2)
Quarter: 2013Q3

REPORT INFORMATION
  Report Type: Report from Study
  Country: BR (occurrence: BR)
  Receive Date: 20130425
  Receipt Date: 20130716
  Transmission Date: 20140515
  Serious: Yes (Other)
  Sender: FDA-Public Use
  Company Number: PHHY2012BR092444

PATIENT
  Age: 45 Year
  Sex: Female
  Weight: 90 kg

DRUGS (5)
  1. SANDOSTATIN LAR [Suspect]
     Indication: ACROMEGALY
     Dosage: 10 MG, ONCE A MONTH
     Route: 030
     Dates: start: 201005
  2. TYLEX                              /00116401/ [Concomitant]
     Dosage: 30 MG, 1 TABLET, DAILY
     Route: 048
  3. PARACETAMOL [Concomitant]
     Dosage: UNK UKN, UNK
  4. OMEPRAZOL [Concomitant]
     Indication: GASTRITIS PROPHYLAXIS
     Dosage: 20 MG, TID, 2 CAPSULE
     Route: 048
  5. DEPOSTERON [Concomitant]
     Indication: HORMONE REPLACEMENT THERAPY
     Dosage: EVERY 30 DAYS
     Route: 030

REACTIONS (7)
  - Lactose intolerance [Recovering/Resolving]
  - Syncope [Recovered/Resolved]
  - Neoplasm [Not Recovered/Not Resolved]
  - Flatulence [Not Recovered/Not Resolved]
  - Weight decreased [Not Recovered/Not Resolved]
  - Diarrhoea [Recovered/Resolved]
  - Abdominal pain [Recovered/Resolved]
